FAERS Safety Report 16664036 (Version 2)
Quarter: 2019Q4

REPORT INFORMATION
  Report Type: Report from Study
  Country: US (occurrence: US)
  Receive Date: 20190802
  Receipt Date: 20191023
  Transmission Date: 20200122
  Serious: Yes (Hospitalization)
  Sender: FDA-Public Use
  Company Number: US-TESAROUBC-2019-TSO02707-US

PATIENT
  Age: 76 Year
  Sex: Female
  Weight: 90.8 kg

DRUGS (24)
  1. CARBOPLATIN. [Suspect]
     Active Substance: CARBOPLATIN
     Indication: OVARIAN CANCER
     Dosage: 5 AUC, UNK
     Route: 042
     Dates: start: 20190208, end: 20190208
  2. CALCIUM CARBONATE. [Concomitant]
     Active Substance: CALCIUM CARBONATE
     Indication: DYSPEPSIA
     Dosage: 500 MG, PRN
     Route: 048
     Dates: start: 20190628
  3. ENOXAPARIN [Concomitant]
     Active Substance: ENOXAPARIN
     Indication: THROMBOSIS PROPHYLAXIS
     Dosage: 40 MG, QD
     Route: 058
     Dates: start: 20190627, end: 20190630
  4. NIRAPARIB [Suspect]
     Active Substance: NIRAPARIB
     Dosage: 300 MG, UNK
     Route: 048
     Dates: start: 20190718, end: 20190719
  5. PLACEBO [Suspect]
     Active Substance: UNSPECIFIED INGREDIENT
     Indication: OVARIAN CANCER
     Dosage: UNK MG, UNK
     Route: 042
     Dates: start: 20190614, end: 20190614
  6. PLACEBO [Suspect]
     Active Substance: UNSPECIFIED INGREDIENT
     Dosage: UNK
     Route: 042
     Dates: start: 20190913, end: 20190913
  7. PACLITAXEL. [Suspect]
     Active Substance: PACLITAXEL
     Indication: OVARIAN CANCER
     Dosage: 330 MG, UNK
     Dates: start: 20190208, end: 20190208
  8. BEVACIZUMAB. [Suspect]
     Active Substance: BEVACIZUMAB
     Dosage: 1300 MG/KG, UNK
     Route: 042
     Dates: start: 20190614, end: 20190614
  9. KETOROLAC [Concomitant]
     Active Substance: KETOROLAC TROMETHAMINE
     Indication: ABDOMINAL PAIN
     Dosage: PRN
     Route: 042
     Dates: start: 20190627, end: 20190630
  10. ONDANSETRON [Concomitant]
     Active Substance: ONDANSETRON
     Indication: NAUSEA
     Dosage: 4 MG, PRN
     Route: 042
     Dates: start: 20190626, end: 20190630
  11. PACLITAXEL. [Suspect]
     Active Substance: PACLITAXEL
     Dosage: 140 UNK, UNK
     Dates: start: 20190524, end: 20190524
  12. GASTROGRAFIN [Concomitant]
     Active Substance: DIATRIZOATE MEGLUMINE\DIATRIZOATE SODIUM
     Indication: SMALL INTESTINAL OBSTRUCTION
     Dosage: 240 ML, SINGLE
     Route: 048
     Dates: start: 20190627, end: 20190627
  13. PROCHLORPERAZINE. [Concomitant]
     Active Substance: PROCHLORPERAZINE
     Indication: NAUSEA
     Dosage: 5 MG, PRN
     Route: 042
     Dates: start: 20190626, end: 20190630
  14. NIRAPARIB [Suspect]
     Active Substance: NIRAPARIB
     Indication: OVARIAN CANCER
     Dosage: UNK
     Route: 048
  15. SODIUM CHLORIDE + DEXTROSE [Concomitant]
     Indication: INTESTINAL OBSTRUCTION
     Dosage: 75 ML WITH 20MEQ OF POTASSIUM
     Route: 042
     Dates: start: 20190626, end: 20190630
  16. PROTONIX                           /00661201/ [Concomitant]
     Active Substance: OMEPRAZOLE
     Indication: GASTROOESOPHAGEAL REFLUX DISEASE
     Dosage: 40 MG, QD
     Route: 042
     Dates: start: 20190627, end: 20190630
  17. OXYCODONE [Concomitant]
     Active Substance: OXYCODONE
     Indication: ABDOMINAL PAIN
     Dosage: 2.5 - 10 MG, PRN
     Route: 048
     Dates: start: 20190626, end: 20190630
  18. SENNA                              /00142201/ [Concomitant]
     Active Substance: SENNA LEAF
     Indication: CONSTIPATION
     Dosage: 8.6/50 MG, BID
     Route: 048
     Dates: start: 20190626, end: 20190630
  19. CARBOPLATIN. [Suspect]
     Active Substance: CARBOPLATIN
     Dosage: 360 AUC, UNK
     Route: 042
     Dates: start: 20190524, end: 20190524
  20. BEVACIZUMAB. [Suspect]
     Active Substance: BEVACIZUMAB
     Indication: OVARIAN CANCER
     Dosage: UNK
  21. MAGNESIUM SULFATE. [Concomitant]
     Active Substance: MAGNESIUM SULFATE
     Indication: HYPOMAGNESAEMIA
     Dosage: 2 G, SINGLE
     Route: 042
     Dates: start: 20190627, end: 20190627
  22. FENTANYL. [Concomitant]
     Active Substance: FENTANYL
     Indication: GASTROINTESTINAL TUBE INSERTION
     Dosage: 50 ?G, SINGLE
     Route: 042
     Dates: start: 20190626, end: 20190626
  23. PHENOL. [Concomitant]
     Active Substance: PHENOL
     Indication: GASTROINTESTINAL TUBE INSERTION
     Dosage: 2 DF, PRN
     Route: 048
     Dates: start: 20190627, end: 20190630
  24. LORAZEPAM. [Concomitant]
     Active Substance: LORAZEPAM
     Indication: GASTROINTESTINAL TUBE INSERTION
     Dosage: 1 MG, SINGLE
     Route: 042
     Dates: start: 20190626, end: 20190626

REACTIONS (1)
  - Hyponatraemia [Recovered/Resolved]

NARRATIVE: CASE EVENT DATE: 20190719
